FAERS Safety Report 6839206-0 (Version None)
Quarter: 2010Q3

REPORT INFORMATION
  Report Type: 
  Country: None (occurrence: None)
  Receive Date: 20100709
  Receipt Date: 20100608
  Transmission Date: 20110219
  Serious: Yes (Hospitalization, Disabling, Other)
  Sender: FDA-Public Use
  Company Number: GB-ACCORD-005381

PATIENT
  Age: 46 Year
  Sex: Female

DRUGS (20)
  1. SIMVASTATIN [Suspect]
     Indication: ARTHRITIS BACTERIAL
     Dosage: 40.00-MG-1.00 PER /ORAL 1 DAY
     Route: 048
  2. FUSIDIC ACID [Suspect]
     Dosage: 500.00 MG- 3.00PE / 1 DAY
  3. ALFACALCIDOL [Concomitant]
  4. ALUMINIUM [Concomitant]
  5. HYDROXIDE (ALUMINUM HYPEROXIDE) [Concomitant]
  6. ASPIRIN [Concomitant]
  7. CALCIUM ACETATE [Concomitant]
  8. CLONAZEPAM [Concomitant]
  9. DILTIAZEM HYDROCHLORIDE [Concomitant]
  10. EPOETIN NOS [Concomitant]
  11. FLOXACILLIN SODIUM [Concomitant]
  12. FOLIC ACID [Concomitant]
  13. GENTAMICIN [Concomitant]
  14. IRON SUCROSE [Concomitant]
  15. MIXTARD HUMAN 70/30 [Concomitant]
  16. NICORANDIL [Concomitant]
  17. OROVITE [Concomitant]
  18. PENICILLIN [Concomitant]
  19. SERTRALINE HYDROCHLORIDE [Concomitant]
  20. WARFARIN [Concomitant]

REACTIONS (2)
  - DRUG INTERACTION [None]
  - RHABDOMYOLYSIS [None]
